FAERS Safety Report 12132983 (Version 2)
Quarter: 2018Q4

REPORT INFORMATION
  Report Type: Spontaneous
  Country: MY (occurrence: MY)
  Receive Date: 20160301
  Receipt Date: 20181120
  Transmission Date: 20190204
  Serious: Yes (Other)
  Sender: FDA-Public Use
  Company Number: MY-IPCA LABORATORIES LIMITED-IPC201602-000288

PATIENT

DRUGS (6)
  1. ALLOPURINOL TABLETS, USP [Suspect]
     Active Substance: ALLOPURINOL
     Indication: GOUT
     Dosage: 300 MG, HS
     Route: 065
  2. ASCORBIC ACID. [Concomitant]
     Active Substance: ASCORBIC ACID
     Indication: PRODUCT USED FOR UNKNOWN INDICATION
     Dosage: 500,MG,QD
     Route: 065
  3. FENOFIBRATE. [Concomitant]
     Active Substance: FENOFIBRATE
     Indication: PRODUCT USED FOR UNKNOWN INDICATION
     Dosage: 145,MG,QD
     Route: 065
  4. ALLOPURINOL TABLETS, USP [Suspect]
     Active Substance: ALLOPURINOL
     Dosage: 150 MG, HS
     Route: 065
  5. GLICLAZIDE MR [Concomitant]
     Active Substance: GLICLAZIDE
     Indication: PRODUCT USED FOR UNKNOWN INDICATION
     Dosage: 90,MG,QD
     Route: 065
  6. METFORMIN [Concomitant]
     Active Substance: METFORMIN HYDROCHLORIDE
     Indication: PRODUCT USED FOR UNKNOWN INDICATION
     Dosage: 1500 MG, HS
     Route: 065

REACTIONS (1)
  - Maculopathy [Not Recovered/Not Resolved]
